FAERS Safety Report 24386995 (Version 1)
Quarter: 2024Q4

REPORT INFORMATION
  Report Type: Report from Study
  Country: BR (occurrence: BR)
  Receive Date: 20241002
  Receipt Date: 20241002
  Transmission Date: 20250115
  Serious: Yes (Other)
  Sender: ABBVIE
  Company Number: BR-ABBVIE-5937648

PATIENT
  Sex: Female

DRUGS (3)
  1. BOTOX [Suspect]
     Active Substance: ONABOTULINUMTOXINA
     Indication: Skin cosmetic procedure
     Dosage: TIME INTERVAL: AS NECESSARY: FORM STRENGTH: 200 IU
     Route: 065
     Dates: start: 2021, end: 2021
  2. Dual (Duloxetine Hydrochloride) [Concomitant]
     Indication: Fibromyalgia
     Route: 048
  3. PREGABALIN [Concomitant]
     Active Substance: PREGABALIN
     Indication: Fibromyalgia
     Route: 048

REACTIONS (11)
  - Cholecystectomy [Unknown]
  - Skin wrinkling [Unknown]
  - Migraine [Not Recovered/Not Resolved]
  - Pain [Unknown]
  - Migraine [Recovered/Resolved]
  - Memory impairment [Unknown]
  - Impatience [Unknown]
  - Nervous system disorder [Unknown]
  - Loss of personal independence in daily activities [Unknown]
  - Vocal cord disorder [Recovering/Resolving]
  - Headache [Unknown]

NARRATIVE: CASE EVENT DATE: 20220101
